FAERS Safety Report 5816066-8 (Version None)
Quarter: 2008Q3

REPORT INFORMATION
  Report Type: 
  Country: None (occurrence: None)
  Receive Date: 20080716
  Receipt Date: 20080702
  Transmission Date: 20090109
  Serious: Yes (Hospitalization)
  Sender: FDA-Public Use
  Company Number: 2008BI014519

PATIENT
  Age: 37 Year
  Sex: Female
  Weight: 53.5244 kg

DRUGS (2)
  1. AVONEX [Suspect]
     Indication: MULTIPLE SCLEROSIS
     Dosage: 15 UG;QW;IM, 30 UG;QW;IM
     Route: 030
     Dates: start: 19970101, end: 19970101
  2. AVONEX [Suspect]
     Indication: MULTIPLE SCLEROSIS
     Dosage: 15 UG;QW;IM, 30 UG;QW;IM
     Route: 030
     Dates: start: 19970101

REACTIONS (5)
  - ABASIA [None]
  - FALL [None]
  - HYPOAESTHESIA [None]
  - INJECTION SITE NODULE [None]
  - URINARY INCONTINENCE [None]
